FAERS Safety Report 17821951 (Version 1)
Quarter: 2020Q2

REPORT INFORMATION
  Report Type: Spontaneous
  Country: US (occurrence: US)
  Receive Date: 20200526
  Receipt Date: 20200526
  Transmission Date: 20200714
  Serious: No
  Sender: FDA-Public Use
  Company Number: US-JNJFOC-20200429053

PATIENT
  Age: 57 Year
  Sex: Male
  Weight: 81.72 kg

DRUGS (1)
  1. MENS ROGAINE EXTRA STRENGTH [Suspect]
     Active Substance: MINOXIDIL
     Indication: ALOPECIA
     Dosage: HALF A CUPFUL, THE PATIENT LAST USED THE PRODUCT ON 19-APR-2020.
     Route: 061
     Dates: start: 20200417

REACTIONS (3)
  - Drug hypersensitivity [Recovered/Resolved]
  - Inappropriate schedule of product administration [Unknown]
  - Underdose [Unknown]

NARRATIVE: CASE EVENT DATE: 20200417
